FAERS Safety Report 20328079 (Version 4)
Quarter: 2025Q1

REPORT INFORMATION
  Report Type: Spontaneous
  Country: US (occurrence: US)
  Receive Date: 20220112
  Receipt Date: 20250204
  Transmission Date: 20250408
  Serious: Yes (Other)
  Sender: BRISTOL-MYERS SQUIBB COMPANY
  Company Number: US-BRISTOL-MYERS SQUIBB COMPANY-BMS-2022-002262

PATIENT
  Age: 76 Year
  Sex: Female

DRUGS (1)
  1. ABATACEPT [Suspect]
     Active Substance: ABATACEPT
     Indication: Rheumatoid arthritis
     Dosage: 125 MILLIGRAM, QWK
     Route: 058
     Dates: start: 201906

REACTIONS (2)
  - Rib fracture [Recovered/Resolved]
  - Fall [Unknown]

NARRATIVE: CASE EVENT DATE: 20211226
